FAERS Safety Report 17272364 (Version 1)
Quarter: 2020Q1

REPORT INFORMATION
  Report Type: Spontaneous
  Country: CA (occurrence: CA)
  Receive Date: 20200115
  Receipt Date: 20200115
  Transmission Date: 20200409
  Serious: Yes (Hospitalization, Other)
  Sender: FDA-Public Use
  Company Number: CA-GILEAD-2020-0446555

PATIENT
  Age: 63 Year
  Sex: Male
  Weight: 88 kg

DRUGS (13)
  1. CIPROFLOXACIN. [Suspect]
     Active Substance: CIPROFLOXACIN
     Indication: URINARY TRACT INFECTION
     Route: 065
  2. CANNABIS SATIVA [Concomitant]
     Active Substance: CANNABIS SATIVA FLOWERING TOP
  3. PREDNISONE. [Concomitant]
     Active Substance: PREDNISONE
  4. CYMBALTA [Concomitant]
     Active Substance: DULOXETINE HYDROCHLORIDE
  5. LEVOTHYROXINE. [Concomitant]
     Active Substance: LEVOTHYROXINE
  6. TAMSULOSIN [Concomitant]
     Active Substance: TAMSULOSIN
  7. TRAMACET [Concomitant]
     Active Substance: ACETAMINOPHEN\TRAMADOL
  8. AZATHIOPRINE. [Suspect]
     Active Substance: AZATHIOPRINE
     Indication: MYASTHENIA GRAVIS
     Dosage: 50 MG, QD
     Route: 048
  9. FELODIPINE. [Concomitant]
     Active Substance: FELODIPINE
  10. ACETAMINOPHEN. [Suspect]
     Active Substance: ACETAMINOPHEN
     Indication: PRODUCT USED FOR UNKNOWN INDICATION
     Route: 065
  11. HARVONI [Suspect]
     Active Substance: LEDIPASVIR\SOFOSBUVIR
     Indication: HEPATITIS C
     Route: 065
  12. TRANDOLAPRIL. [Concomitant]
     Active Substance: TRANDOLAPRIL
  13. TRAZODONE [Concomitant]
     Active Substance: TRAZODONE HYDROCHLORIDE

REACTIONS (1)
  - Hepatotoxicity [Not Recovered/Not Resolved]
